FAERS Safety Report 7573864-0 (Version None)
Quarter: 2011Q2

REPORT INFORMATION
  Report Type: 
  Country: None (occurrence: None)
  Receive Date: 20110627
  Receipt Date: 20110607
  Transmission Date: 20111010
  Serious: Yes (Hospitalization)
  Sender: FDA-Public Use
  Company Number: A0932782A

PATIENT
  Age: 59 Year
  Sex: Female
  Weight: 95 kg

DRUGS (9)
  1. AVANDIA [Suspect]
     Dosage: 4MG TWICE PER DAY
     Route: 048
     Dates: start: 20030808
  2. XANAX [Concomitant]
  3. CITALOPRAM HYDROBROMIDE [Concomitant]
  4. ZOLPIDEM [Concomitant]
  5. METOPROLOL TARTRATE [Concomitant]
  6. INSULIN [Concomitant]
  7. ZETIA [Concomitant]
  8. LIPITOR [Concomitant]
  9. DIOVAN [Concomitant]

REACTIONS (1)
  - CORONARY ARTERY DISEASE [None]
